FAERS Safety Report 26122679 (Version 1)
Quarter: 2025Q4

REPORT INFORMATION
  Report Type: Spontaneous
  Country: BR (occurrence: BR)
  Receive Date: 20251204
  Receipt Date: 20251204
  Transmission Date: 20260117
  Serious: Yes (Life-Threatening)
  Sender: GRIFOLS
  Company Number: BR-IGSA-BIG0039834

PATIENT
  Age: 44 Year
  Sex: Male
  Weight: 85.5 kg

DRUGS (2)
  1. FLEBOGAMMA DIF [Suspect]
     Active Substance: HUMAN IMMUNOGLOBULIN G
     Indication: Myasthenia gravis
     Dosage: 34 GRAM, QD
     Route: 042
     Dates: start: 20251112, end: 20251114
  2. FLEBOGAMMA DIF [Suspect]
     Active Substance: HUMAN IMMUNOGLOBULIN G
     Indication: Off label use

REACTIONS (4)
  - Hypoxia [Not Recovered/Not Resolved]
  - Shock [Not Recovered/Not Resolved]
  - Pneumonia aspiration [Not Recovered/Not Resolved]
  - Acute respiratory failure [Not Recovered/Not Resolved]

NARRATIVE: CASE EVENT DATE: 20251112
